FAERS Safety Report 14287265 (Version 5)
Quarter: 2018Q1

REPORT INFORMATION
  Report Type: Spontaneous
  Country: IT (occurrence: IT)
  Receive Date: 20171214
  Receipt Date: 20180118
  Transmission Date: 20180509
  Serious: Yes (Death, Other)
  Sender: FDA-Public Use
  Company Number: IT-PFIZER INC-2017530079

PATIENT
  Age: 32 Year
  Sex: Female

DRUGS (2)
  1. DOXORUBICIN HCL [Suspect]
     Active Substance: DOXORUBICIN HYDROCHLORIDE
     Indication: LEIOMYOSARCOMA
     Dosage: 75 MG/M2, UNKNOWN
     Route: 042
  2. LARTRUVO [Suspect]
     Active Substance: OLARATUMAB
     Indication: LEIOMYOSARCOMA
     Dosage: 15 MG/KG, UNK

REACTIONS (7)
  - Pancytopenia [Fatal]
  - Hyperbilirubinaemia [Fatal]
  - Hepatic function abnormal [Fatal]
  - Neoplasm progression [Fatal]
  - Tumour lysis syndrome [Fatal]
  - Renal failure [Fatal]
  - Pyrexia [Fatal]
